FAERS Safety Report 20345892 (Version 1)
Quarter: 2022Q1

REPORT INFORMATION
  Report Type: Spontaneous
  Country: US (occurrence: None)
  Receive Date: 20220115
  Receipt Date: 20220115
  Transmission Date: 20220423
  Serious: No
  Sender: FDA-Public Use
  Company Number: None

PATIENT
  Age: 22 Year
  Sex: Male
  Weight: 74.25 kg

DRUGS (2)
  1. DEXTROAMPHET SACCHARAT, AMPHET ASPARTATE, DEXTROAMPHET SULFATE AND AMP [Suspect]
     Active Substance: AMPHETAMINE ASPARTATE\AMPHETAMINE SULFATE\DEXTROAMPHETAMINE SACCHARATE\DEXTROAMPHETAMINE SULFATE
     Indication: Attention deficit hyperactivity disorder
     Dosage: OTHER QUANTITY : 30 CAPSULE(S);?
     Route: 048
     Dates: start: 20211220, end: 20220114
  2. SERTRALINE [Concomitant]
     Active Substance: SERTRALINE HYDROCHLORIDE

REACTIONS (6)
  - Product quality issue [None]
  - Blood pressure systolic decreased [None]
  - Gastrointestinal disorder [None]
  - Decreased appetite [None]
  - Depressed level of consciousness [None]
  - Amnesia [None]
